FAERS Safety Report 11529473 (Version 1)
Quarter: 2015Q3

REPORT INFORMATION
  Report Type: Spontaneous
  Country: CA (occurrence: CA)
  Receive Date: 20150921
  Receipt Date: 20150921
  Transmission Date: 20151125
  Serious: Yes (Other)
  Sender: FDA-Public Use
  Company Number: CA-UCBSA-2015029365

PATIENT
  Age: 11 Year
  Sex: Female

DRUGS (1)
  1. KEPPRA [Suspect]
     Active Substance: LEVETIRACETAM
     Indication: PRODUCT USED FOR UNKNOWN INDICATION
     Dosage: 250 MG, UNK

REACTIONS (5)
  - Seizure [Unknown]
  - Tunnel vision [Unknown]
  - Product use issue [Unknown]
  - Drug ineffective [Unknown]
  - Visual impairment [Unknown]
